FAERS Safety Report 6813685-7 (Version None)
Quarter: 2010Q3

REPORT INFORMATION
  Report Type: 
  Country: None (occurrence: None)
  Receive Date: 20100701
  Receipt Date: 20100621
  Transmission Date: 20110219
  Serious: Yes (Hospitalization)
  Sender: FDA-Public Use
  Company Number: IT-ABBOTT-10P-083-0652732-00

PATIENT
  Age: 81 Year
  Sex: Female

DRUGS (11)
  1. DEPAKENE [Suspect]
     Indication: AFFECTIVE DISORDER
     Route: 048
     Dates: start: 20100501, end: 20100601
  2. LANTUS [Concomitant]
     Indication: PRODUCT USED FOR UNKNOWN INDICATION
  3. HUMALOG [Concomitant]
     Indication: PRODUCT USED FOR UNKNOWN INDICATION
  4. SERENASE [Concomitant]
     Indication: PRODUCT USED FOR UNKNOWN INDICATION
  5. TICLOPIDINE HCL [Concomitant]
     Indication: PRODUCT USED FOR UNKNOWN INDICATION
  6. LANSOX [Concomitant]
     Indication: PRODUCT USED FOR UNKNOWN INDICATION
  7. LASIX [Concomitant]
     Indication: PRODUCT USED FOR UNKNOWN INDICATION
  8. LANOXIN [Concomitant]
     Indication: PRODUCT USED FOR UNKNOWN INDICATION
  9. TRAZODONE HCL [Concomitant]
     Indication: PRODUCT USED FOR UNKNOWN INDICATION
  10. NITROCOR [Concomitant]
     Indication: PRODUCT USED FOR UNKNOWN INDICATION
  11. CLEXANE [Concomitant]
     Indication: PRODUCT USED FOR UNKNOWN INDICATION

REACTIONS (2)
  - DERMATITIS BULLOUS [None]
  - SCAB [None]
